FAERS Safety Report 10583728 (Version 1)
Quarter: 2014Q4

REPORT INFORMATION
  Report Type: Spontaneous
  Country: AU (occurrence: None)
  Receive Date: 20141112
  Receipt Date: 20141112
  Transmission Date: 20150529
  Serious: Yes (Hospitalization)
  Sender: FDA-Public Use
  Company Number: 2014-20681

PATIENT
  Age: 90 Year
  Sex: Female

DRUGS (1)
  1. EYLEA [Suspect]
     Active Substance: AFLIBERCEPT
     Indication: NEOVASCULAR AGE-RELATED MACULAR DEGENERATION
     Dosage: 2 MG MILLIGRAM(S), UNK, INTRAOCULAR
     Route: 031
     Dates: start: 201301, end: 201301

REACTIONS (2)
  - Angiopathy [None]
  - Drug dose omission [None]

NARRATIVE: CASE EVENT DATE: 2014
